FAERS Safety Report 14880022 (Version 2)
Quarter: 2024Q3

REPORT INFORMATION
  Report Type: Spontaneous
  Country: US (occurrence: US)
  Receive Date: 20180511
  Receipt Date: 20240921
  Transmission Date: 20241016
  Serious: Yes (Other)
  Sender: ACCORD
  Company Number: US-ACCORD-066740

PATIENT
  Age: 61 Year
  Sex: Male

DRUGS (5)
  1. TIGECYCLINE [Suspect]
     Active Substance: TIGECYCLINE
     Indication: Localised infection
  2. MYCOPHENOLATE MOFETIL [Suspect]
     Active Substance: MYCOPHENOLATE MOFETIL
     Indication: Immunosuppression
  3. CYCLOSPORINE [Suspect]
     Active Substance: CYCLOSPORINE
     Indication: Immunosuppression
  4. CLOFAZIMINE [Concomitant]
     Active Substance: CLOFAZIMINE
     Indication: Localised infection
     Route: 042
  5. LINEZOLID [Concomitant]
     Active Substance: LINEZOLID

REACTIONS (3)
  - Localised infection [Recovered/Resolved]
  - Pancreatitis acute [Recovering/Resolving]
  - Mycobacterium chelonae infection [Recovered/Resolved]
